FAERS Safety Report 8121253-2 (Version None)
Quarter: 2012Q1

REPORT INFORMATION
  Report Type: 
  Country: None (occurrence: None)
  Receive Date: 20120208
  Receipt Date: 20120202
  Transmission Date: 20120608
  Serious: Yes (Life-Threatening, Other)
  Sender: FDA-Public Use
  Company Number: US-ROXANE LABORATORIES, INC.-2012-RO-00590RO

PATIENT
  Age: 2 Day
  Sex: Female
  Weight: 3 kg

DRUGS (4)
  1. EPINEPHRINE [Suspect]
     Indication: HAEMOSTASIS
  2. LIDOCAINE [Suspect]
     Indication: HAEMOSTASIS
  3. LIDOCAINE [Suspect]
     Indication: PAIN MANAGEMENT
  4. EPINEPHRINE [Suspect]
     Indication: PAIN MANAGEMENT

REACTIONS (2)
  - HAEMOGLOBIN DECREASED [None]
  - METHAEMOGLOBINAEMIA [None]
